FAERS Safety Report 18836309 (Version 3)
Quarter: 2021Q1

REPORT INFORMATION
  Report Type: Spontaneous
  Country: AT (occurrence: AT)
  Receive Date: 20210203
  Receipt Date: 20210330
  Transmission Date: 20210419
  Serious: Yes (Other)
  Sender: FDA-Public Use
  Company Number: AT-SA-2021SA029981

PATIENT
  Age: 59 Year
  Sex: Male

DRUGS (8)
  1. PEMBROLIZUMAB. [Concomitant]
     Active Substance: PEMBROLIZUMAB
     Indication: CUTANEOUS T-CELL LYMPHOMA
     Dosage: 2 MG/KG
     Route: 042
     Dates: start: 20200427, end: 20200813
  2. BEXAROTENE. [Concomitant]
     Active Substance: BEXAROTENE
  3. BRENTUXIMAB VEDOTIN [Concomitant]
     Active Substance: BRENTUXIMAB VEDOTIN
     Dosage: UNK
     Dates: start: 201902, end: 202001
  4. ALEMTUZUMAB [Concomitant]
     Active Substance: ALEMTUZUMAB
     Dosage: UNK
     Dates: start: 201804, end: 201902
  5. DUPIXENT [Suspect]
     Active Substance: DUPILUMAB
     Indication: CUTANEOUS T-CELL LYMPHOMA
     Dosage: 200 MG, QOW
     Route: 058
     Dates: start: 202005, end: 202007
  6. DUPIXENT [Suspect]
     Active Substance: DUPILUMAB
     Indication: CUTANEOUS T-CELL LYMPHOMA
     Dosage: UNK
  7. PEMBROLIZUMAB. [Concomitant]
     Active Substance: PEMBROLIZUMAB
     Dosage: 16 DF
  8. ALEMTUZUMAB [Concomitant]
     Active Substance: ALEMTUZUMAB
     Dosage: UNK
     Dates: start: 201702

REACTIONS (3)
  - Off label use [Unknown]
  - Condition aggravated [Unknown]
  - T-cell lymphoma [Unknown]

NARRATIVE: CASE EVENT DATE: 202005
